FAERS Safety Report 17398653 (Version 2)
Quarter: 2020Q1

REPORT INFORMATION
  Report Type: Report from Study
  Country: FR (occurrence: FR)
  Receive Date: 20200210
  Receipt Date: 20200331
  Transmission Date: 20200409
  Serious: Yes (Death, Other)
  Sender: FDA-Public Use
  Company Number: FR-JAZZ-2020-FR-001901

PATIENT

DRUGS (1)
  1. DEFITELIO [Suspect]
     Active Substance: DEFIBROTIDE SODIUM
     Indication: VENOOCCLUSIVE DISEASE
     Dosage: 22 MG/KG/DAY
     Route: 042
     Dates: start: 20190301, end: 20190304

REACTIONS (3)
  - Venoocclusive liver disease [Fatal]
  - Off label use [Unknown]
  - Nephropathy toxic [Fatal]

NARRATIVE: CASE EVENT DATE: 20190301
